FAERS Safety Report 24411408 (Version 1)
Quarter: 2024Q4

REPORT INFORMATION
  Report Type: Spontaneous
  Country: NL (occurrence: NL)
  Receive Date: 20241008
  Receipt Date: 20241008
  Transmission Date: 20250115
  Serious: Yes (Other)
  Sender: UPSHER SMITH LABORATORIES
  Company Number: NL-UPSHER-SMITH LABORATORIES, LLC-20240900151

PATIENT
  Age: 18 Year
  Sex: Male

DRUGS (3)
  1. CHLORPROMAZINE HYDROCHLORIDE [Suspect]
     Active Substance: CHLORPROMAZINE HYDROCHLORIDE
     Indication: Autism spectrum disorder
     Dosage: UNK
     Route: 065
  2. DIVALPROEX SODIUM [Concomitant]
     Active Substance: DIVALPROEX SODIUM
     Indication: Product used for unknown indication
     Dosage: UNK
     Route: 065
  3. FLUOXETINE [Concomitant]
     Active Substance: FLUOXETINE HYDROCHLORIDE
     Indication: Product used for unknown indication
     Dosage: UNK
     Route: 065

REACTIONS (1)
  - Autoimmune haemolytic anaemia [Recovered/Resolved]
